FAERS Safety Report 6978918-5 (Version None)
Quarter: 2010Q3

REPORT INFORMATION
  Report Type: 
  Country: None (occurrence: None)
  Receive Date: 20100913
  Receipt Date: 20100830
  Transmission Date: 20110219
  Serious: Yes (Other)
  Sender: FDA-Public Use
  Company Number: US-SANOFI-AVENTIS-2010SA052327

PATIENT

DRUGS (4)
  1. LOVENOX [Suspect]
     Route: 065
  2. LOVENOX [Suspect]
     Route: 065
  3. INTEGRILIN [Suspect]
     Route: 065
  4. INTEGRILIN [Suspect]
     Route: 065

REACTIONS (2)
  - OFF LABEL USE [None]
  - THROMBOSIS [None]
